FAERS Safety Report 25849804 (Version 2)
Quarter: 2025Q4

REPORT INFORMATION
  Report Type: Spontaneous
  Country: EU (occurrence: EU)
  Receive Date: 20250926
  Receipt Date: 20251013
  Transmission Date: 20260118
  Serious: Yes (Hospitalization)
  Sender: ABBVIE
  Company Number: None

PATIENT
  Age: 48 Year
  Sex: Male
  Weight: 86 kg

DRUGS (1)
  1. HUMIRA [Suspect]
     Active Substance: ADALIMUMAB
     Indication: Crohn^s disease
     Route: 058
     Dates: start: 2019, end: 20250704

REACTIONS (2)
  - Oligoarthritis [Recovered/Resolved]
  - Staphylococcal bacteraemia [Recovered/Resolved]

NARRATIVE: CASE EVENT DATE: 20250712
